FAERS Safety Report 8272925-0 (Version None)
Quarter: 2012Q2

REPORT INFORMATION
  Report Type: 
  Country: None (occurrence: None)
  Receive Date: 20120406
  Receipt Date: 20120406
  Transmission Date: 20120825
  Serious: Yes (Other)
  Sender: FDA-Public Use
  Company Number: None

PATIENT
  Age: 71 Year
  Sex: Female
  Weight: 76.4 kg

DRUGS (1)
  1. VALACYCLOVIR HYDROCHLORIDE [Suspect]
     Indication: HERPES ZOSTER
     Dosage: 1 GRAM TABLET 3/DAY EVERY 8 HOURS 10 DAYS ORAL
     Route: 048
     Dates: start: 20120213, end: 20120222

REACTIONS (4)
  - PAIN [None]
  - DYSURIA [None]
  - GASTROINTESTINAL DISORDER [None]
  - SWELLING [None]
